FAERS Safety Report 22301666 (Version 2)
Quarter: 2023Q2

REPORT INFORMATION
  Report Type: Spontaneous
  Country: BR (occurrence: BR)
  Receive Date: 20230510
  Receipt Date: 20230523
  Transmission Date: 20230721
  Serious: Yes (Disabling)
  Sender: FDA-Public Use
  Company Number: BR-ABBVIE-4760698

PATIENT
  Sex: Female

DRUGS (2)
  1. RINVOQ [Suspect]
     Active Substance: UPADACITINIB
     Indication: Rheumatic disorder
     Dosage: 1 TABLET
  2. RINVOQ [Suspect]
     Active Substance: UPADACITINIB
     Indication: Rheumatic disorder
     Route: 048

REACTIONS (7)
  - Gait inability [Not Recovered/Not Resolved]
  - Fall [Unknown]
  - Dysgraphia [Unknown]
  - Diverticulitis [Unknown]
  - Pain in extremity [Unknown]
  - Off label use [Unknown]
  - Pain in extremity [Unknown]
